FAERS Safety Report 11065759 (Version 1)
Quarter: 2015Q2

REPORT INFORMATION
  Report Type: Spontaneous
  Country: US (occurrence: None)
  Receive Date: 20150423
  Receipt Date: 20150423
  Transmission Date: 20150821
  Serious: Yes (Death, Hospitalization)
  Sender: FDA-Public Use
  Company Number: US-H14001-15-00581

PATIENT
  Age: 30 Year
  Sex: Female

DRUGS (3)
  1. HYDROXYCHLOROQUINE (HYDROXYCHLOROQUINE) (UNKNOWN) (HYDROXYCHLOROQUINE) [Suspect]
     Active Substance: HYDROXYCHLOROQUINE
     Indication: SEIZURE
  2. PHENYTOIN (PHENYTOIN) [Concomitant]
     Active Substance: PHENYTOIN
  3. LEVETIRACETAM (LEVETIRACETAM) [Concomitant]
     Active Substance: LEVETIRACETAM

REACTIONS (5)
  - Multi-organ failure [None]
  - Septic shock [None]
  - Zygomycosis [None]
  - Toxic epidermal necrolysis [None]
  - Stevens-Johnson syndrome [None]
